FAERS Safety Report 7735546-1 (Version None)
Quarter: 2011Q3

REPORT INFORMATION
  Report Type: 
  Country: None (occurrence: None)
  Receive Date: 20110907
  Receipt Date: 20110823
  Transmission Date: 20111222
  Serious: Yes (Life-Threatening, Hospitalization, Disabling)
  Sender: FDA-Public Use
  Company Number: GB-WATSON-2011-13497

PATIENT
  Age: 70 Year
  Sex: Male

DRUGS (4)
  1. OMEPRAZOLE [Concomitant]
     Indication: PRODUCT USED FOR UNKNOWN INDICATION
     Dosage: 2 DF, DAILY
     Route: 065
     Dates: start: 20071019
  2. CETIRIZINE HCL [Concomitant]
     Indication: HYPERSENSITIVITY
     Dosage: 5 MG, UNKNOWN
     Route: 048
     Dates: start: 20080430
  3. GAVISCON                           /00237601/ [Concomitant]
     Indication: HYPERSENSITIVITY
     Dosage: 10 ML, PRN
     Route: 065
     Dates: start: 20040921
  4. CIPROFLOXACIN HCL [Suspect]
     Indication: DIVERTICULITIS
     Dosage: 250 MG, DAILY
     Route: 048
     Dates: start: 20030630, end: 20110717

REACTIONS (2)
  - ABDOMINAL DISTENSION [None]
  - GASTROINTESTINAL NECROSIS [None]
